FAERS Safety Report 8770993 (Version 1)
Quarter: 2012Q4

REPORT INFORMATION
  Report Type: 
  Country: US (occurrence: US)
  Receive Date: 20120906
  Receipt Date: 20120906
  Transmission Date: 20130627
  Serious: Yes (Other)
  Sender: FDA-Public Use
  Company Number: US-PFIZER INC-2012215231

PATIENT
  Age: 54 Year
  Sex: Female
  Weight: 90.7 kg

DRUGS (18)
  1. CELEBREX [Suspect]
     Indication: ARTHRITIS
     Dosage: 200 mg, 1x/day
     Route: 048
  2. LIPITOR [Suspect]
     Indication: BLOOD CHOLESTEROL ABNORMAL
     Dosage: 40 mg, 1x/day
     Route: 048
     Dates: start: 20120302
  3. METFORMIN [Concomitant]
     Indication: DIABETES MELLITUS
     Dosage: 1000 mg, 2x/day
  4. GLIMEPIRIDE [Concomitant]
     Indication: DIABETES MELLITUS
     Dosage: 4 mg, 2x/day
  5. HUMALOG [Concomitant]
     Indication: DIABETES MELLITUS
     Dosage: UNK, as needed
  6. FOLIC ACID [Concomitant]
     Dosage: 1 mg, 1x/day
  7. POTASSIUM CHLORIDE [Concomitant]
     Dosage: 10 mEq, 1x/day
  8. IRON [Concomitant]
     Dosage: 325 mg, 1x/day
  9. FEXOFENADINE [Concomitant]
     Dosage: 180 mg, 1x/day
  10. OMEPRAZOLE [Concomitant]
     Dosage: 40 mg, 1x/day
  11. XANAX [Concomitant]
     Dosage: 1 mg, 1x/day
  12. LEVOTHYROXINE [Concomitant]
     Dosage: 125 ug, 1x/day
  13. SINGULAIR [Concomitant]
     Dosage: 10 mg, 1x/day
  14. ALBUTEROL [Concomitant]
     Dosage: 2 puffs , as needed
  15. HYDROCHLOROTHIAZIDE [Concomitant]
     Dosage: 12.5 mg, 1x/day
  16. FLOVENT [Concomitant]
     Dosage: 220 ug (110 mcg 2 puffs), 2x/day
  17. DOCUSATE [Concomitant]
     Dosage: 100 mg, 2x/day
  18. FERROUS SULPHATE [Concomitant]
     Dosage: 325 mg, 2x/day

REACTIONS (3)
  - Uterine disorder [Unknown]
  - Transfusion [Unknown]
  - Blood cholesterol abnormal [Unknown]
